FAERS Safety Report 6509387-7 (Version None)
Quarter: 2009Q4

REPORT INFORMATION
  Report Type: 
  Country: None (occurrence: None)
  Receive Date: 20091222
  Receipt Date: 20091217
  Transmission Date: 20100525
  Serious: Yes (Hospitalization, Other)
  Sender: FDA-Public Use
  Company Number: FR-ALLERGAN-0917403US

PATIENT
  Age: 75 Year
  Sex: Male

DRUGS (2)
  1. ACULAR [Suspect]
     Indication: CONJUNCTIVITIS
     Dosage: UNK
     Route: 047
     Dates: start: 20090917, end: 20090925
  2. INDOBIOTIC [Suspect]
     Indication: CONJUNCTIVITIS
     Dosage: UNK
     Route: 047
     Dates: start: 20090907, end: 20090916

REACTIONS (2)
  - ULCERATIVE KERATITIS [None]
  - VISUAL ACUITY REDUCED [None]
